FAERS Safety Report 8796365 (Version 1)
Quarter: 2012Q4

REPORT INFORMATION
  Report Type: 
  Country: NZ (occurrence: NZ)
  Receive Date: 20120919
  Receipt Date: 20120919
  Transmission Date: 20130627
  Serious: Yes (Other)
  Sender: FDA-Public Use
  Company Number: NZ-MYLANLABS-2012S1018506

PATIENT
  Age: 46 Year
  Sex: Female

DRUGS (6)
  1. NAPROXEN [Suspect]
     Indication: PRODUCT USED FOR UNKNOWN INDICATION
  2. NORTRIPTYLINE [Suspect]
     Indication: PRODUCT USED FOR UNKNOWN INDICATION
  3. OMEPRAZOLE [Suspect]
     Indication: PRODUCT USED FOR UNKNOWN INDICATION
  4. VARENICLINE [Suspect]
     Indication: PRODUCT USED FOR UNKNOWN INDICATION
  5. THYROXINE [Suspect]
     Indication: PRODUCT USED FOR UNKNOWN INDICATION
  6. OESTRADIOL [Suspect]
     Indication: PRODUCT USED FOR UNKNOWN INDICATION

REACTIONS (3)
  - Haemoptysis [Recovered/Resolved]
  - Dysphonia [Recovered/Resolved]
  - Drug interaction [Recovered/Resolved]
